FAERS Safety Report 4767205-1 (Version None)
Quarter: 2005Q3

REPORT INFORMATION
  Report Type: 
  Country: None (occurrence: None)
  Receive Date: 20050912
  Receipt Date: 20050912
  Transmission Date: 20060218
  Serious: Yes (Hospitalization)
  Sender: FDA-Public Use
  Company Number: None

PATIENT
  Age: 75 Year
  Sex: Male
  Weight: 67.1324 kg

DRUGS (2)
  1. TAXOL [Suspect]
     Dates: start: 20050221
  2. . [Concomitant]

REACTIONS (5)
  - ANGINA UNSTABLE [None]
  - CORONARY ARTERY RESTENOSIS [None]
  - PHARMACEUTICAL PRODUCT COMPLAINT [None]
  - POST PROCEDURAL COMPLICATION [None]
  - STENT OCCLUSION [None]
